FAERS Safety Report 6610504-9 (Version None)
Quarter: 2010Q1

REPORT INFORMATION
  Report Type: 
  Country: None (occurrence: None)
  Receive Date: 20100302
  Receipt Date: 20100224
  Transmission Date: 20100710
  Serious: Yes (Life-Threatening, Hospitalization)
  Sender: FDA-Public Use
  Company Number: PHHY2010CH10525

PATIENT
  Age: 42 Year
  Sex: Female

DRUGS (8)
  1. GLEEVEC [Suspect]
     Indication: PULMONARY HYPERTENSION
     Dosage: 400 MG PER DAY
     Dates: start: 20100107, end: 20100116
  2. MARCUMAR [Suspect]
     Dosage: 3 MG PER DAY
     Dates: end: 20100116
  3. TRACLEER [Concomitant]
     Dosage: 250 MG PER DAY
  4. CALCIUM SANDOZ [Concomitant]
     Dosage: 1 DOSAGE FORM PER DAY
  5. LASIX [Concomitant]
     Dosage: 120 MG PER DAY
  6. METOLAZONE [Concomitant]
     Dosage: 10 MG PER DAY
  7. SPIRONOLACTONE [Concomitant]
     Dosage: 300 MG PER DAY
  8. TOREM [Concomitant]
     Dosage: 600 MG PER DAY

REACTIONS (4)
  - DRUG INTERACTION [None]
  - GASTRIC ULCER [None]
  - GASTROINTESTINAL HAEMORRHAGE [None]
  - PROTHROMBIN TIME PROLONGED [None]
